FAERS Safety Report 23421815 (Version 5)
Quarter: 2025Q3

REPORT INFORMATION
  Report Type: Spontaneous
  Country: US (occurrence: US)
  Receive Date: 20240119
  Receipt Date: 20250815
  Transmission Date: 20251020
  Serious: Yes (Hospitalization)
  Sender: PFIZER
  Company Number: US-PFIZER INC-202400016468

PATIENT
  Age: 77 Year
  Sex: Female

DRUGS (16)
  1. XELJANZ [Suspect]
     Active Substance: TOFACITINIB CITRATE
  2. XELJANZ [Suspect]
     Active Substance: TOFACITINIB CITRATE
  3. ATENOLOL [Concomitant]
     Active Substance: ATENOLOL
  4. CARDIZEM [Concomitant]
     Active Substance: DILTIAZEM HYDROCHLORIDE
  5. COZAAR [Concomitant]
     Active Substance: LOSARTAN POTASSIUM
  6. SINGULAIR [Concomitant]
     Active Substance: MONTELUKAST SODIUM
  7. DITROPAN [Concomitant]
     Active Substance: OXYBUTYNIN CHLORIDE
  8. PIROXICAM [Concomitant]
     Active Substance: PIROXICAM
  9. BIOTIN [Concomitant]
     Active Substance: BIOTIN
  10. PRAVACHOL [Concomitant]
     Active Substance: PRAVASTATIN SODIUM
  11. MYRBETRIQ [Concomitant]
     Active Substance: MIRABEGRON
  12. XANAX [Concomitant]
     Active Substance: ALPRAZOLAM
  13. NEURONTIN [Concomitant]
     Active Substance: GABAPENTIN
  14. OMEPRAZOLE [Concomitant]
     Active Substance: OMEPRAZOLE
  15. CALTRATE [Concomitant]
     Active Substance: CALCIUM CARBONATE
  16. FISH OIL [Concomitant]
     Active Substance: FISH OIL

REACTIONS (2)
  - Food poisoning [Unknown]
  - Urinary tract infection [Recovering/Resolving]
